FAERS Safety Report 7592942-3 (Version None)
Quarter: 2011Q3

REPORT INFORMATION
  Report Type: 
  Country: None (occurrence: None)
  Receive Date: 20110706
  Receipt Date: 20110614
  Transmission Date: 20111222
  Serious: Yes (Hospitalization)
  Sender: FDA-Public Use
  Company Number: US-GLAXOSMITHKLINE-A0805975A

PATIENT
  Age: 38 Year
  Sex: Male
  Weight: 75.9 kg

DRUGS (5)
  1. AVANDIA [Suspect]
     Indication: TYPE 2 DIABETES MELLITUS
     Dosage: 4MG PER DAY
     Route: 048
     Dates: start: 20000417, end: 20040801
  2. LIPITOR [Concomitant]
  3. DARVOCET [Concomitant]
  4. NEXIUM [Concomitant]
  5. PREVACID [Concomitant]

REACTIONS (2)
  - MYOCARDIAL INFARCTION [None]
  - CHEST PAIN [None]
